FAERS Safety Report 5408168-5 (Version None)
Quarter: 2007Q3

REPORT INFORMATION
  Report Type: 
  Country: None (occurrence: None)
  Receive Date: 20070808
  Receipt Date: 20070801
  Transmission Date: 20080115
  Serious: Yes (Other)
  Sender: FDA-Public Use
  Company Number: PHMT2007CA01682

PATIENT
  Age: 61 Year
  Sex: Female

DRUGS (3)
  1. CELEBRA [Concomitant]
     Indication: ARTHRITIS
     Dosage: SEVERAL YEARS
  2. NAPROXEN [Concomitant]
  3. AREDIA [Suspect]
     Indication: OSTEOPOROSIS
     Dosage: EVERY MONTH FOR THREE MONTHS EVERY YEAR
     Route: 042
     Dates: start: 20010101, end: 20060101

REACTIONS (5)
  - COUGH [None]
  - LIMB OPERATION [None]
  - OSTEONECROSIS [None]
  - PAIN IN EXTREMITY [None]
  - PULMONARY MASS [None]
